FAERS Safety Report 9109787 (Version 2)
Quarter: 2013Q1

REPORT INFORMATION
  Report Type: Spontaneous
  Country: US (occurrence: US)
  Receive Date: 20130222
  Receipt Date: 20130328
  Transmission Date: 20140127
  Serious: No
  Sender: FDA-Public Use
  Company Number: US-PFIZER INC-2013065028

PATIENT
  Age: 45 Year
  Sex: Female

DRUGS (2)
  1. GABAPENTIN [Suspect]
     Indication: TYPE 2 DIABETES MELLITUS
     Dosage: 300 MG, UNK
  2. GABAPENTIN [Suspect]
     Indication: NEURALGIA

REACTIONS (1)
  - Drug ineffective [Unknown]
